FAERS Safety Report 21056460 (Version 1)
Quarter: 2022Q3

REPORT INFORMATION
  Report Type: Spontaneous
  Country: ES (occurrence: ES)
  Receive Date: 20220708
  Receipt Date: 20220708
  Transmission Date: 20221026
  Serious: Yes (Other)
  Sender: FDA-Public Use
  Company Number: None

PATIENT
  Age: 44 Year
  Sex: Male

DRUGS (2)
  1. COTELLIC [Suspect]
     Active Substance: COBIMETINIB
     Indication: Product used for unknown indication
     Dosage: 2 COMP/DAY
     Route: 065
     Dates: start: 20200804
  2. ZELBORAF [Suspect]
     Active Substance: VEMURAFENIB
     Indication: Malignant melanoma
     Dosage: 3 COMPS EVERY 12 HOURS
     Route: 065
     Dates: start: 20200804

REACTIONS (2)
  - Vision blurred [Recovered/Resolved]
  - Uveitis [Recovered/Resolved]

NARRATIVE: CASE EVENT DATE: 20220510
